FAERS Safety Report 23256344 (Version 1)
Quarter: 2023Q4

REPORT INFORMATION
  Report Type: Report from Study
  Country: IN (occurrence: None)
  Receive Date: 20231204
  Receipt Date: 20231204
  Transmission Date: 20240109
  Serious: Yes (Death, Hospitalization)
  Sender: FDA-Public Use
  Company Number: 2023A273010

PATIENT
  Age: 28437 Day
  Sex: Female

DRUGS (1)
  1. TAGRISSO [Suspect]
     Active Substance: OSIMERTINIB
     Indication: Metastasis
     Route: 048

REACTIONS (1)
  - Adverse drug reaction [Fatal]

NARRATIVE: CASE EVENT DATE: 20230923
